FAERS Safety Report 7557539-X (Version None)
Quarter: 2011Q2

REPORT INFORMATION
  Report Type: 
  Country: None (occurrence: None)
  Receive Date: 20110620
  Receipt Date: 20110614
  Transmission Date: 20111010
  Serious: Yes (Other)
  Sender: FDA-Public Use
  Company Number: US-PFIZER INC-2011130411

PATIENT
  Sex: Female
  Weight: 59 kg

DRUGS (3)
  1. LYRICA [Suspect]
     Indication: NEURALGIA
     Dosage: 75 MG, 2X/DAY
     Route: 048
     Dates: start: 20110607
  2. LYRICA [Suspect]
     Indication: PROCEDURAL PAIN
  3. ARTHROTEC [Concomitant]
     Indication: ARTHRITIS
     Dosage: UNK

REACTIONS (3)
  - TEARFULNESS [None]
  - DRUG INEFFECTIVE [None]
  - APHASIA [None]
